FAERS Safety Report 6633935-X (Version None)
Quarter: 2010Q1

REPORT INFORMATION
  Report Type: 
  Country: None (occurrence: None)
  Receive Date: 20100315
  Receipt Date: 20100305
  Transmission Date: 20100710
  Serious: Yes (Hospitalization)
  Sender: FDA-Public Use
  Company Number: GB-JNJFOC-20100302498

PATIENT
  Age: 33 Year
  Sex: Male

DRUGS (3)
  1. IBUPROFEN [Suspect]
     Indication: TOOTHACHE
     Route: 048
  2. PARACETAMOL [Concomitant]
     Indication: TOOTHACHE
     Route: 048
  3. AMOXICILLIN [Concomitant]
     Indication: TOOTH INFECTION
     Route: 048

REACTIONS (1)
  - TUBULOINTERSTITIAL NEPHRITIS [None]
